FAERS Safety Report 9648272 (Version 1)
Quarter: 2013Q4

REPORT INFORMATION
  Report Type: Spontaneous
  Country: US (occurrence: None)
  Receive Date: 20131024
  Receipt Date: 20131024
  Transmission Date: 20140711
  Serious: No
  Sender: FDA-Public Use
  Company Number: None

PATIENT
  Age: 39 Year
  Sex: Female

DRUGS (1)
  1. TOPAMAX [Suspect]
     Indication: MIGRAINE
     Dosage: 60
     Route: 048
     Dates: start: 20131015, end: 20131017

REACTIONS (8)
  - Dry mouth [None]
  - Somnolence [None]
  - Confusional state [None]
  - Speech disorder [None]
  - Bradyphrenia [None]
  - Heart rate irregular [None]
  - Disturbance in attention [None]
  - Thirst [None]
